FAERS Safety Report 10566211 (Version 2)
Quarter: 2015Q1

REPORT INFORMATION
  Report Type: Spontaneous
  Country: IT (occurrence: IT)
  Receive Date: 20141105
  Receipt Date: 20150206
  Transmission Date: 20150720
  Serious: Yes (Hospitalization)
  Sender: FDA-Public Use
  Company Number: IT-SA-2014SA148343

PATIENT
  Age: 74 Year
  Sex: Female

DRUGS (5)
  1. LASIX [Suspect]
     Active Substance: FUROSEMIDE
     Route: 048
     Dates: start: 20090101, end: 20090311
  2. COUMADIN [Concomitant]
     Active Substance: WARFARIN SODIUM
  3. LANOXIN [Concomitant]
     Active Substance: DIGOXIN
  4. MICARDIS [Concomitant]
     Active Substance: TELMISARTAN
     Route: 048
  5. MODURETIC 5-50 [Suspect]
     Active Substance: AMILORIDE HYDROCHLORIDE\HYDROCHLOROTHIAZIDE
     Dosage: (AMLODIPINE + HYDROCHLOROTHIAZIDE) 5MG + 50 MG TABLETS
     Route: 048
     Dates: start: 20090101, end: 20090311

REACTIONS (2)
  - Confusional state [Recovered/Resolved]
  - Hyponatraemia [Recovered/Resolved]

NARRATIVE: CASE EVENT DATE: 20090311
